FAERS Safety Report 19786289 (Version 2)
Quarter: 2021Q3

REPORT INFORMATION
  Report Type: Spontaneous
  Country: NL (occurrence: NL)
  Receive Date: 20210903
  Receipt Date: 20210924
  Transmission Date: 20211014
  Serious: Yes (Life-Threatening, Hospitalization, Other)
  Sender: FDA-Public Use
  Company Number: NL-TEVA-2021-NL-1947785

PATIENT
  Age: 74 Year
  Sex: Female
  Weight: 66 kg

DRUGS (6)
  1. HYDROCHLOORTHIAZIDE TABLET 12,5MG / BRAND NAME NOT SPECIFIED [Suspect]
     Active Substance: HYDROCHLOROTHIAZIDE
     Indication: HYPERTENSION
     Dosage: 1 DOSAGE FORMS DAILY;
     Dates: start: 20190816, end: 20210709
  2. ASCORBINEZUUR TABLET 500MG / BRAND NAME NOT SPECIFIED [Concomitant]
     Dosage: 1000 MG TIME RELEASED; THERAPY START AND END DATE: ASKU
  3. COLECALCIFEROL / BRAND NAME NOT SPECIFIED [Concomitant]
     Active Substance: CHOLECALCIFEROL
     Dosage: 20 MG; THERAPY START AND END DATE: ASKU
  4. LEVOTHYROXINE TABLET  25UG (ZUUR) / THYRAX DUOTAB TABLET 0,025MG [Concomitant]
     Active Substance: LEVOTHYROXINE SODIUM
     Dosage: 85 MICROGRAM; THERAPY START AND END DATE: ASKU
  5. AMLODIPINE TABLET   5MG / BRAND NAME NOT SPECIFIED [Concomitant]
     Active Substance: AMLODIPINE BESYLATE
     Dosage: 5 MG (MILLIGRAM); THERAPY START AND END DATE: ASKU
  6. ESOMEPRAZOL CAPSULE MSR 40MG / BRAND NAME NOT SPECIFIED [Concomitant]
     Active Substance: ESOMEPRAZOLE
     Dosage: 40 MG (MILLIGRAM); THERAPY START AND END DATE: ASKU

REACTIONS (8)
  - Arrhythmia [Recovering/Resolving]
  - Pollakiuria [Recovering/Resolving]
  - Cerebral infarction [Recovering/Resolving]
  - Fatigue [Not Recovered/Not Resolved]
  - Nausea [Unknown]
  - Headache [Recovered/Resolved]
  - Hypokalaemia [Recovering/Resolving]
  - Malaise [Recovered/Resolved]

NARRATIVE: CASE EVENT DATE: 20210627
